FAERS Safety Report 12644209 (Version 2)
Quarter: 2019Q1

REPORT INFORMATION
  Report Type: Spontaneous
  Country: FR (occurrence: FR)
  Receive Date: 20160811
  Receipt Date: 20190119
  Transmission Date: 20190417
  Serious: Yes (Death, Hospitalization, Other)
  Sender: FDA-Public Use
  Company Number: FR-AUROBINDO-AUR-APL-2016-10298

PATIENT
  Age: 79 Year
  Sex: Male

DRUGS (10)
  1. PREDNISOLONE. [Interacting]
     Active Substance: PREDNISOLONE
     Indication: PRODUCT USED FOR UNKNOWN INDICATION
     Dosage: 20 MG, UNK
     Route: 065
  2. PREDNISOLONE. [Interacting]
     Active Substance: PREDNISOLONE
     Dosage: 10 MG, UNK
     Route: 065
  3. ERLOTINIB [Interacting]
     Active Substance: ERLOTINIB
     Indication: NON-SMALL CELL LUNG CANCER
     Dosage: 150 MILLIGRAM, ONCE A DAY, SECOND-LINE THERAPY
     Route: 065
  4. CIPROFLOXACIN. [Suspect]
     Active Substance: CIPROFLOXACIN
     Indication: DIARRHOEA
     Dosage: UNK
     Route: 065
  5. PACLITAXEL. [Suspect]
     Active Substance: PACLITAXEL
     Indication: NON-SMALL CELL LUNG CANCER
     Dosage: UNK
     Route: 065
  6. CARBOPLATIN. [Concomitant]
     Active Substance: CARBOPLATIN
     Indication: NON-SMALL CELL LUNG CANCER
     Dosage: UNK
     Route: 065
  7. LOPERAMIDE [Interacting]
     Active Substance: LOPERAMIDE
     Indication: DIARRHOEA
     Dosage: UNK, ONCE A DAY
     Route: 065
  8. METHYLPREDNISOLONE. [Interacting]
     Active Substance: METHYLPREDNISOLONE
     Indication: VOMITING
     Dosage: 30 MILLIGRAM, ONCE A DAY
     Route: 065
  9. RACECADOTRIL [Suspect]
     Active Substance: RACECADOTRIL
     Indication: DIARRHOEA
     Dosage: UNK
     Route: 065
  10. PIPERACILLIN AND TAZOBACTAM [Concomitant]
     Active Substance: PIPERACILLIN SODIUM\TAZOBACTAM SODIUM
     Indication: PRODUCT USED FOR UNKNOWN INDICATION
     Route: 065

REACTIONS (11)
  - Renal failure [Unknown]
  - Gastrointestinal perforation [Fatal]
  - Pyrexia [Fatal]
  - Diarrhoea [Fatal]
  - Vomiting [Fatal]
  - Pneumoperitoneum [Fatal]
  - Drug interaction [Fatal]
  - Abdominal pain upper [Fatal]
  - Dehydration [Unknown]
  - Scan abdomen abnormal [Fatal]
  - Abdominal distension [Fatal]
